FAERS Safety Report 5677330-9 (Version None)
Quarter: 2008Q1

REPORT INFORMATION
  Report Type: 
  Country: None (occurrence: None)
  Receive Date: 20080320
  Receipt Date: 20080320
  Transmission Date: 20080703
  Serious: Yes (Life-Threatening)
  Sender: FDA-Public Use
  Company Number: None

PATIENT
  Age: 28 Year
  Sex: Female
  Weight: 64.4108 kg

DRUGS (1)
  1. ALLI [Suspect]
     Dosage: 1 TO 2  ONCE A DAY  BUCCAL
     Route: 002
     Dates: start: 20080221, end: 20080315

REACTIONS (3)
  - CHEST PAIN [None]
  - DRUG INEFFECTIVE [None]
  - DYSPNOEA [None]
